FAERS Safety Report 8405930-1 (Version None)
Quarter: 2012Q2

REPORT INFORMATION
  Report Type: 
  Country: None (occurrence: None)
  Receive Date: 20120323
  Receipt Date: 20110512
  Transmission Date: 20120825
  Serious: Yes (Hospitalization)
  Sender: FDA-Public Use
  Company Number: 163-21880-11011056

PATIENT
  Age: 61 Year
  Sex: Female

DRUGS (2)
  1. REVLIMID [Suspect]
     Indication: MULTIPLE MYELOMA
     Dosage: 5 MG, DAILY ON DAYS 1-21, PO, 5 MG, DAILY ON DAYS 1-21, PO
     Route: 048
     Dates: start: 20101207, end: 20101221
  2. REVLIMID [Suspect]
     Indication: MULTIPLE MYELOMA
     Dosage: 5 MG, DAILY ON DAYS 1-21, PO, 5 MG, DAILY ON DAYS 1-21, PO
     Route: 048
     Dates: start: 20101228

REACTIONS (4)
  - URTICARIA [None]
  - RASH MACULO-PAPULAR [None]
  - RASH ERYTHEMATOUS [None]
  - PRURITUS [None]
